FAERS Safety Report 4884672-3 (Version None)
Quarter: 2006Q1

REPORT INFORMATION
  Report Type: 
  Country: None (occurrence: None)
  Receive Date: 20060117
  Receipt Date: 20060104
  Transmission Date: 20060701
  Serious: Yes (Other)
  Sender: FDA-Public Use
  Company Number: 2005139259

PATIENT
  Sex: Female
  Weight: 29.0302 kg

DRUGS (13)
  1. NEURONTIN [Suspect]
     Indication: NERVE INJURY
     Dosage: 900 MG (300 MG, 3 IN 1 D)
     Dates: start: 20020101, end: 20040101
  2. NEURONTIN [Suspect]
     Indication: PAIN
     Dosage: 900 MG (300 MG, 3 IN 1 D)
     Dates: start: 20020101, end: 20040101
  3. VIOXX [Suspect]
     Indication: PAIN
  4. MORPHINE SULFATE [Suspect]
     Indication: PAIN
     Dosage: (DAILY)
     Dates: start: 20050101
  5. LOPRESSOR [Concomitant]
  6. TOPAMAX [Concomitant]
  7. PREMARIN [Concomitant]
  8. PROVERA [Concomitant]
  9. SYNTHROID [Concomitant]
  10. SKELAXIN [Concomitant]
  11. ZANAFLEX [Concomitant]
  12. FROVA FROVATRIPTAN) [Concomitant]
  13. ZOMIG [Concomitant]

REACTIONS (6)
  - DEPRESSION [None]
  - INTERVERTEBRAL DISC PROTRUSION [None]
  - NERVE INJURY [None]
  - OEDEMA [None]
  - ROAD TRAFFIC ACCIDENT [None]
  - SUICIDAL IDEATION [None]
